FAERS Safety Report 7161409-9 (Version None)
Quarter: 2010Q4

REPORT INFORMATION
  Report Type: 
  Country: None (occurrence: None)
  Receive Date: 20101123
  Receipt Date: 20101008
  Transmission Date: 20110411
  Serious: No
  Sender: FDA-Public Use
  Company Number: 020109

PATIENT
  Sex: Female
  Weight: 68 kg

DRUGS (2)
  1. CIMZIA [Suspect]
     Indication: CROHN'S DISEASE
     Dosage: 400 MG 1X/MONTH SUBCUTANEOUS
     Route: 058
     Dates: start: 20100801
  2. TYLENOL [Concomitant]

REACTIONS (2)
  - CROHN'S DISEASE [None]
  - URINE ABNORMALITY [None]
